FAERS Safety Report 21503367 (Version 2)
Quarter: 2022Q4

REPORT INFORMATION
  Report Type: Spontaneous
  Country: US (occurrence: US)
  Receive Date: 20221025
  Receipt Date: 20221118
  Transmission Date: 20230113
  Serious: Yes (Hospitalization)
  Sender: FDA-Public Use
  Company Number: US-PFIZER INC-202201249400

PATIENT
  Age: 88 Year
  Sex: Male
  Weight: 75.75 kg

DRUGS (8)
  1. VYNDAMAX [Suspect]
     Active Substance: TAFAMIDIS
     Indication: Cardiac amyloidosis
     Dosage: 61 MG, DAILY
     Route: 048
  2. APIXABAN [Concomitant]
     Active Substance: APIXABAN
     Indication: Atrial fibrillation
     Dosage: 2.5 MG, 2X/DAY
     Route: 048
  3. CALCIUM CITRATE\CHOLECALCIFEROL [Concomitant]
     Active Substance: CALCIUM CITRATE\CHOLECALCIFEROL
     Dosage: 2 DF, DAILY (LIKE 6,000 SOMETHING RECOMMENDED)
  4. FUROSEMIDE [Concomitant]
     Active Substance: FUROSEMIDE
     Indication: Diuretic therapy
     Dosage: 20 MG, 2X/DAY
     Route: 048
  5. LEVOTHYROXINE [Concomitant]
     Active Substance: LEVOTHYROXINE
     Indication: Hypothyroidism
     Dosage: 200 MG, DAILY
     Route: 048
  6. FLOMAX [Concomitant]
     Active Substance: TAMSULOSIN HYDROCHLORIDE
     Dosage: 0.4 MG, DAILY (1 TABLET NIGHTLY)
     Route: 048
  7. ACETAMINOPHEN [Concomitant]
     Active Substance: ACETAMINOPHEN
     Indication: Arthritis
     Dosage: 600 MG, 2X/DAY
     Route: 048
  8. AMIODARONE [Concomitant]
     Active Substance: AMIODARONE
     Indication: Cardiac disorder
     Dosage: 200 MG, DAILY
     Route: 048

REACTIONS (1)
  - Cardiac disorder [Unknown]
